FAERS Safety Report 10314639 (Version 1)
Quarter: 2014Q3

REPORT INFORMATION
  Report Type: Spontaneous
  Country: JP (occurrence: JP)
  Receive Date: 20140718
  Receipt Date: 20140718
  Transmission Date: 20150326
  Serious: Yes (Death)
  Sender: FDA-Public Use
  Company Number: JP-SHIONOGI, INC-2014000679

PATIENT
  Age: 61 Year
  Sex: Male

DRUGS (8)
  1. ELNEOPA NO.1 [Concomitant]
     Route: 065
  2. DUROTEP [Concomitant]
     Active Substance: FENTANYL
     Route: 065
  3. FOSPHENYTOIN [Concomitant]
     Active Substance: FOSPHENYTOIN\FOSPHENYTOIN SODIUM
     Route: 065
  4. FINIBAX [Suspect]
     Active Substance: DORIPENEM MONOHYDRATE
     Indication: LUNG ABSCESS
     Route: 042
     Dates: start: 20140707, end: 20140711
  5. HICALIQ [Concomitant]
     Route: 065
  6. TEGRETOL [Suspect]
     Active Substance: CARBAMAZEPINE
     Route: 048
     Dates: end: 20140711
  7. KEPPRA [Concomitant]
     Active Substance: LEVETIRACETAM
     Route: 065
  8. GASTER [Concomitant]
     Active Substance: FAMOTIDINE
     Route: 065

REACTIONS (2)
  - Death [Fatal]
  - Hepatic function abnormal [Not Recovered/Not Resolved]

NARRATIVE: CASE EVENT DATE: 20140709
